FAERS Safety Report 22219327 (Version 1)
Quarter: 2023Q2

REPORT INFORMATION
  Report Type: Spontaneous
  Country: US (occurrence: US)
  Receive Date: 20230417
  Receipt Date: 20230417
  Transmission Date: 20230722
  Serious: No
  Sender: FDA-Public Use
  Company Number: US-TAKEDA-2023TUS038390

PATIENT
  Sex: Male
  Weight: 76 kg

DRUGS (13)
  1. FOSRENOL [Suspect]
     Active Substance: LANTHANUM CARBONATE
     Indication: Hyperphosphataemia
     Dosage: 6 DOSAGE FORM, QD
     Route: 065
  2. CALCITRIOL [Concomitant]
     Active Substance: CALCITRIOL
  3. FUROSEMIDE [Concomitant]
     Active Substance: FUROSEMIDE
  4. LOSARTAN [Concomitant]
     Active Substance: LOSARTAN
  5. METOPROLOL [Concomitant]
     Active Substance: METOPROLOL
  6. ZOFRAN [Concomitant]
     Active Substance: ONDANSETRON HYDROCHLORIDE
  7. NIACIN [Concomitant]
     Active Substance: NIACIN
  8. OZEMPIC [Concomitant]
     Active Substance: SEMAGLUTIDE
  9. ROSUVASTATIN [Concomitant]
     Active Substance: ROSUVASTATIN
  10. SODIUM BICARBONATE [Concomitant]
     Active Substance: SODIUM BICARBONATE
  11. TEMAZEPAM [Concomitant]
     Active Substance: TEMAZEPAM
  12. VITAMIN B12 [Concomitant]
     Active Substance: CYANOCOBALAMIN
  13. FOLIC ACID [Suspect]
     Active Substance: FOLIC ACID

REACTIONS (3)
  - Product dose omission issue [Unknown]
  - Product dispensing error [Unknown]
  - No adverse event [Unknown]
